FAERS Safety Report 4353518-4 (Version None)
Quarter: 2004Q2

REPORT INFORMATION
  Report Type: 
  Country: None (occurrence: None)
  Receive Date: 20040505
  Receipt Date: 20040308
  Transmission Date: 20050107
  Serious: Yes (Other)
  Sender: FDA-Public Use
  Company Number: CH-ROCHE-361028

PATIENT
  Age: 14 Year
  Sex: Male
  Weight: 35 kg

DRUGS (1)
  1. ROACCUTAN [Suspect]
     Route: 048
     Dates: start: 20040109, end: 20040202

REACTIONS (2)
  - POSTOPERATIVE WOUND COMPLICATION [None]
  - SKIN ULCER [None]
